FAERS Safety Report 10584601 (Version 2)
Quarter: 2014Q4

REPORT INFORMATION
  Report Type: Spontaneous
  Country: FR (occurrence: FR)
  Receive Date: 20141114
  Receipt Date: 20141125
  Transmission Date: 20150529
  Serious: Yes (Hospitalization)
  Sender: FDA-Public Use
  Company Number: FR-WATSON-2014-24240

PATIENT
  Sex: Male

DRUGS (1)
  1. CARBOPLATINE ACTAVIS [Suspect]
     Active Substance: CARBOPLATIN
     Indication: GASTRIC CANCER
     Dosage: 150 MG, TOTAL
     Route: 042
     Dates: start: 20140918, end: 20140918

REACTIONS (4)
  - Hypotension [Recovered/Resolved]
  - Skin discolouration [Recovered/Resolved]
  - Chills [Recovered/Resolved]
  - Oxygen saturation decreased [Recovered/Resolved]

NARRATIVE: CASE EVENT DATE: 20140918
